FAERS Safety Report 5848322-1 (Version None)
Quarter: 2008Q3

REPORT INFORMATION
  Report Type: 
  Country: None (occurrence: None)
  Receive Date: 20080818
  Receipt Date: 20080808
  Transmission Date: 20090109
  Serious: Yes (Hospitalization)
  Sender: FDA-Public Use
  Company Number: FR-MERCK-0808FRA00015

PATIENT
  Age: 78 Year
  Sex: Male

DRUGS (4)
  1. ZOCOR [Suspect]
     Indication: HYPERCHOLESTEROLAEMIA
     Route: 048
     Dates: end: 20080711
  2. ESCITALOPRAM OXALATE [Suspect]
     Indication: DEPRESSION
     Route: 048
     Dates: start: 20080701, end: 20080711
  3. INDAPAMIDE AND PERINDOPRIL ERBUMINE [Suspect]
     Indication: HYPERTENSION
     Route: 048
     Dates: end: 20080711
  4. BROMAZEPAM [Suspect]
     Indication: DEPRESSION
     Route: 065
     Dates: start: 20070301, end: 20080711

REACTIONS (1)
  - HYPONATRAEMIA [None]
